FAERS Safety Report 4918561-2 (Version None)
Quarter: 2006Q1

REPORT INFORMATION
  Report Type: 
  Country: None (occurrence: None)
  Receive Date: 20060221
  Receipt Date: 20060221
  Transmission Date: 20060701
  Serious: Yes (Life-Threatening)
  Sender: FDA-Public Use
  Company Number: None

PATIENT
  Age: 67 Year
  Sex: Female
  Weight: 45.8133 kg

DRUGS (6)
  1. CHLORAL HYDRATE LIQUID [Suspect]
     Indication: SLEEP DISORDER
     Dosage: 4 TABLESPOONS AT BEDTIME ORALLY
     Route: 048
  2. NEURONTIN [Concomitant]
  3. PAXIL [Concomitant]
  4. KLONOPIN [Concomitant]
  5. LITHIUM [Concomitant]
  6. VICODEN [Concomitant]

REACTIONS (3)
  - DETOXIFICATION [None]
  - INSOMNIA [None]
  - LOSS OF CONSCIOUSNESS [None]
